FAERS Safety Report 22289717 (Version 1)
Quarter: 2023Q2

REPORT INFORMATION
  Report Type: Spontaneous
  Country: MX (occurrence: MX)
  Receive Date: 20230505
  Receipt Date: 20230505
  Transmission Date: 20230721
  Serious: Yes (Death, Other)
  Sender: FDA-Public Use
  Company Number: MX-SA-SAC20230503001113

PATIENT

DRUGS (1)
  1. LARONIDASE [Suspect]
     Active Substance: LARONIDASE
     Indication: Mucopolysaccharidosis I
     Dosage: 1 DF, TID
     Route: 042
     Dates: start: 20220429, end: 202208

REACTIONS (2)
  - Death [Fatal]
  - Bone marrow transplant [Unknown]

NARRATIVE: CASE EVENT DATE: 20220801
